FAERS Safety Report 9272181 (Version 2)
Quarter: 2013Q2

REPORT INFORMATION
  Report Type: Spontaneous
  Country: US (occurrence: US)
  Receive Date: 20130506
  Receipt Date: 20130517
  Transmission Date: 20140414
  Serious: Yes (Other)
  Sender: FDA-Public Use
  Company Number: US-BAYER-2013-054687

PATIENT
  Age: 31 Year
  Sex: Female

DRUGS (6)
  1. MIRENA [Suspect]
     Indication: DYSMENORRHOEA
     Dosage: 20 MCG/24HR, CONT
     Route: 015
     Dates: start: 20120502
  2. PAXIL [Concomitant]
  3. SUDAFED [Concomitant]
  4. PRENATAL VITAMINS [VIT C,B5,B12,D2,B3,B6,RETINOL PALMIT,B2,B1 MONO [Concomitant]
  5. IBUPROFEN [Concomitant]
  6. BENADRYL [Concomitant]

REACTIONS (10)
  - Off label use [None]
  - Abdominal pain lower [None]
  - Nausea [None]
  - Decreased appetite [None]
  - Anaemia [None]
  - Ovarian cyst [None]
  - Cervical cyst [None]
  - Genital haemorrhage [None]
  - Abdominal pain lower [None]
  - Device expulsion [None]
